FAERS Safety Report 15472832 (Version 2)
Quarter: 2018Q4

REPORT INFORMATION
  Report Type: Spontaneous
  Country: US (occurrence: US)
  Receive Date: 20181008
  Receipt Date: 20181012
  Transmission Date: 20190205
  Serious: No
  Sender: FDA-Public Use
  Company Number: US-PFIZER INC-2018401347

PATIENT
  Age: 59 Year
  Sex: Female
  Weight: 91.17 kg

DRUGS (3)
  1. GABAPENTIN. [Suspect]
     Active Substance: GABAPENTIN
     Indication: SCIATICA
     Dosage: 300 MG, 3X/DAY
     Route: 048
     Dates: start: 20181001
  2. GABAPENTIN. [Suspect]
     Active Substance: GABAPENTIN
     Indication: INTERVERTEBRAL DISC PROTRUSION
  3. GABAPENTIN. [Suspect]
     Active Substance: GABAPENTIN
     Indication: LUMBAR SPINAL STENOSIS

REACTIONS (1)
  - Drug ineffective for unapproved indication [Unknown]
